FAERS Safety Report 4992179-8 (Version None)
Quarter: 2006Q2

REPORT INFORMATION
  Report Type: 
  Country: None (occurrence: None)
  Receive Date: 20060504
  Receipt Date: 20060406
  Transmission Date: 20061013
  Serious: Yes (Hospitalization)
  Sender: FDA-Public Use
  Company Number: FR-BRISTOL-MYERS SQUIBB COMPANY-13340633

PATIENT
  Age: 56 Year
  Sex: Female
  Weight: 69 kg

DRUGS (6)
  1. VIDEX [Suspect]
     Route: 048
     Dates: start: 20050728, end: 20051027
  2. KALETRA [Suspect]
     Route: 048
     Dates: start: 20050728, end: 20051027
  3. ZIAGEN [Suspect]
     Indication: HIV INFECTION
     Dates: start: 20050728, end: 20051027
  4. HALDOL [Concomitant]
  5. MEDIATOR [Concomitant]
  6. PRAVASTATIN [Concomitant]

REACTIONS (2)
  - HALLUCINATION [None]
  - MENTAL DISORDER [None]
